FAERS Safety Report 20224317 (Version 1)
Quarter: 2021Q4

REPORT INFORMATION
  Report Type: Report from Study
  Country: BR (occurrence: BR)
  Receive Date: 20211223
  Receipt Date: 20211223
  Transmission Date: 20220303
  Serious: Yes (Other)
  Sender: FDA-Public Use
  Company Number: BR-TAKEDA-BR202031625

PATIENT
  Sex: Male
  Weight: 64 kg

DRUGS (3)
  1. HEMO-8R [Suspect]
     Active Substance: ANTIHEMOPHILIC FACTOR, HUMAN RECOMBINANT
     Indication: Factor VIII deficiency
     Dosage: 1500 INTERNATIONAL UNIT
     Route: 065
     Dates: start: 20050906
  2. HEMO-8R [Suspect]
     Active Substance: ANTIHEMOPHILIC FACTOR, HUMAN RECOMBINANT
     Dosage: 1750 INTERNATIONAL UNIT, 3/WEEK
     Route: 042
     Dates: start: 20200921
  3. HEMO-8R [Suspect]
     Active Substance: ANTIHEMOPHILIC FACTOR, HUMAN RECOMBINANT
     Dosage: 1750 INTERNATIONAL UNIT, 2/WEEK
     Route: 042

REACTIONS (9)
  - Haemarthrosis [Unknown]
  - Osteoarthritis [Recovering/Resolving]
  - Pain in extremity [Recovering/Resolving]
  - Weight increased [Unknown]
  - Joint ankylosis [Not Recovered/Not Resolved]
  - Bone deformity [Unknown]
  - Pain [Unknown]
  - Peripheral swelling [Unknown]
  - Therapeutic product effect incomplete [Unknown]
